FAERS Safety Report 10048086 (Version 3)
Quarter: 2014Q2

REPORT INFORMATION
  Report Type: Spontaneous
  Country: US (occurrence: US)
  Receive Date: 20140331
  Receipt Date: 20140509
  Transmission Date: 20141212
  Serious: No
  Sender: FDA-Public Use
  Company Number: US-PFIZER INC-2014086867

PATIENT
  Age: 77 Year
  Sex: Female

DRUGS (3)
  1. SEPTRA [Suspect]
     Dosage: UNK
  2. BENADRYL [Suspect]
     Dosage: UNK
  3. PHENERGAN [Suspect]
     Dosage: UNK

REACTIONS (2)
  - Drug hypersensitivity [Unknown]
  - Restlessness [Unknown]
